FAERS Safety Report 23473814 (Version 1)
Quarter: 2024Q1

REPORT INFORMATION
  Report Type: Spontaneous
  Country: CA (occurrence: CA)
  Receive Date: 20240203
  Receipt Date: 20240203
  Transmission Date: 20240410
  Serious: Yes (Other)
  Sender: FDA-Public Use
  Company Number: CA-BAYER-2023A078664

PATIENT
  Sex: Male

DRUGS (1)
  1. EYLEA [Suspect]
     Active Substance: AFLIBERCEPT
     Indication: Diabetic retinal oedema
     Dosage: 2.0 MG, NO. OF EYLEA DOSES BEFORE THE EVENT: 35, OU, 40 MG/ML, SOLUTION FOR INJECTION
     Route: 031
     Dates: end: 20230509

REACTIONS (2)
  - Multiple use of single-use product [Recovering/Resolving]
  - Eye inflammation [Recovering/Resolving]

NARRATIVE: CASE EVENT DATE: 20230509
